FAERS Safety Report 8841349 (Version 3)
Quarter: 2013Q3

REPORT INFORMATION
  Report Type: Spontaneous
  Country: US (occurrence: US)
  Receive Date: 20121015
  Receipt Date: 20130924
  Transmission Date: 20140515
  Serious: No
  Sender: FDA-Public Use
  Company Number: US-009507513-1210USA005035

PATIENT
  Age: 51 Year
  Sex: Female

DRUGS (3)
  1. PEGINTRON [Suspect]
     Indication: HEPATITIS C
     Dosage: REDIPEN
     Dates: start: 20121009
  2. REBETOL [Suspect]
     Indication: HEPATITIS C
     Dosage: UNK
     Dates: start: 20121009
  3. TELAPREVIR [Suspect]
     Indication: HEPATITIS C
     Dosage: UNK
     Dates: start: 20121009

REACTIONS (7)
  - Thirst [Unknown]
  - Headache [Unknown]
  - Insomnia [Unknown]
  - Chills [Unknown]
  - Headache [Unknown]
  - Photophobia [Unknown]
  - Lethargy [Unknown]
